FAERS Safety Report 13577261 (Version 1)
Quarter: 2017Q2

REPORT INFORMATION
  Report Type: Report from Study
  Country: US (occurrence: US)
  Receive Date: 20170524
  Receipt Date: 20170524
  Transmission Date: 20170830
  Serious: Yes (Other)
  Sender: FDA-Public Use
  Company Number: US-MYLANLABS-2017M1030984

PATIENT

DRUGS (1)
  1. SIMVASTATIN. [Suspect]
     Active Substance: SIMVASTATIN
     Indication: PRODUCT USED FOR UNKNOWN INDICATION
     Dosage: 40MG; DAILY
     Route: 048

REACTIONS (2)
  - Musculoskeletal disorder [Recovered/Resolved]
  - Blood creatine phosphokinase increased [Recovered/Resolved]
